FAERS Safety Report 7358284-6 (Version None)
Quarter: 2011Q1

REPORT INFORMATION
  Report Type: 
  Country: None (occurrence: None)
  Receive Date: 20110307
  Receipt Date: 20100518
  Transmission Date: 20110831
  Serious: No
  Sender: FDA-Public Use
  Company Number: AEUSA201000205

PATIENT
  Age: 57 Year
  Sex: Female
  Weight: 72.1219 kg

DRUGS (2)
  1. INHALER [Concomitant]
  2. PROLASTIN [Suspect]
     Indication: ALPHA-1 ANTI-TRYPSIN DEFICIENCY
     Dosage: QM;IV
     Route: 042
     Dates: start: 19870101

REACTIONS (2)
  - MYALGIA [None]
  - FATIGUE [None]
